FAERS Safety Report 10055489 (Version 1)
Quarter: 2014Q2

REPORT INFORMATION
  Report Type: Spontaneous
  Country: CA (occurrence: CA)
  Receive Date: 20140403
  Receipt Date: 20140403
  Transmission Date: 20141212
  Serious: Yes (Other)
  Sender: FDA-Public Use
  Company Number: CA-AMGEN-CANSP2014022303

PATIENT
  Age: 78 Year
  Sex: Male

DRUGS (2)
  1. PROLIA [Suspect]
     Indication: BONE DENSITY INCREASED
     Route: 065
  2. PROLIA [Suspect]
     Indication: OSTEOPOROSIS

REACTIONS (1)
  - Cerebrovascular accident [Unknown]
